FAERS Safety Report 7548161-X (Version None)
Quarter: 2011Q2

REPORT INFORMATION
  Report Type: 
  Country: None (occurrence: None)
  Receive Date: 20110608
  Receipt Date: 20110527
  Transmission Date: 20111010
  Serious: Yes (Hospitalization)
  Sender: FDA-Public Use
  Company Number: LEO-2011-00163

PATIENT
  Age: 41 Year
  Sex: Female
  Weight: 38 kg

DRUGS (5)
  1. CARBOPLATIN [Concomitant]
  2. INNOHEP [Suspect]
     Indication: EMBOLISM VENOUS
     Dosage: 8000 IU (8000 IU, 1 IN 1 D) SUBCUTANEOUS
     Route: 058
     Dates: start: 20100831, end: 20110123
  3. RABEPRAZOLE (RABEPRAZOLE) [Concomitant]
  4. PACLITAXEL [Concomitant]
  5. C-PINK (FERROUS ASCORBATE) [Concomitant]

REACTIONS (5)
  - GASTROINTESTINAL HAEMORRHAGE [None]
  - GASTRODUODENITIS [None]
  - DUODENAL ULCER [None]
  - VERTIGO [None]
  - HAEMOGLOBIN DECREASED [None]
